FAERS Safety Report 15504690 (Version 3)
Quarter: 2019Q1

REPORT INFORMATION
  Report Type: Spontaneous
  Country: US (occurrence: US)
  Receive Date: 20181016
  Receipt Date: 20190206
  Transmission Date: 20190417
  Serious: No
  Sender: FDA-Public Use
  Company Number: US-SA-2018SA283841

PATIENT
  Age: 61 Year
  Sex: Female

DRUGS (4)
  1. BETAMETHASONE. [Concomitant]
     Active Substance: BETAMETHASONE
     Indication: PRURITUS
  2. HYDROXYZINE [Concomitant]
     Active Substance: HYDROXYZINE HYDROCHLORIDE
     Indication: PRURITUS
     Dosage: 10 MG, 1-2TAKEN AT NIGHT
     Route: 048
     Dates: start: 20180927, end: 20181010
  3. DUPIXENT [Suspect]
     Active Substance: DUPILUMAB
     Indication: DERMATITIS ATOPIC
     Dosage: 300 MG, QOW
     Route: 058
     Dates: start: 20180805
  4. BETAMETHASONE. [Concomitant]
     Active Substance: BETAMETHASONE
     Indication: DERMATITIS ATOPIC
     Dosage: 0.05 %, QD
     Route: 061
     Dates: start: 20180929

REACTIONS (3)
  - Pruritus [Unknown]
  - Rash [Unknown]
  - Psoriasis [Unknown]

NARRATIVE: CASE EVENT DATE: 20181001
